FAERS Safety Report 5709348-1 (Version None)
Quarter: 2008Q2

REPORT INFORMATION
  Report Type: 
  Country: None (occurrence: None)
  Receive Date: 20080418
  Receipt Date: 20080417
  Transmission Date: 20081010
  Serious: Yes (Hospitalization)
  Sender: FDA-Public Use
  Company Number: A0723345A

PATIENT
  Age: 59 Year
  Sex: Female
  Weight: 68.2 kg

DRUGS (6)
  1. ALLI [Suspect]
     Dates: start: 20070616, end: 20080329
  2. DIOVAN [Concomitant]
  3. HYDROCHLOROTHIAZIDE [Concomitant]
  4. FOSAMAX [Concomitant]
  5. MULTI-VITAMIN [Concomitant]
  6. CALCIUM WITH VITAMIN D [Concomitant]

REACTIONS (5)
  - ABDOMINAL PAIN UPPER [None]
  - APPENDICITIS [None]
  - INCISION SITE INFECTION [None]
  - INFECTION [None]
  - PYREXIA [None]
